FAERS Safety Report 13935342 (Version 1)
Quarter: 2017Q3

REPORT INFORMATION
  Report Type: Spontaneous
  Country: US (occurrence: US)
  Receive Date: 20170901
  Receipt Date: 20170901
  Transmission Date: 20171127
  Serious: No
  Sender: FDA-Public Use
  Company Number: None

PATIENT
  Age: 31 Year
  Sex: Female
  Weight: 60.75 kg

DRUGS (6)
  1. VITAMIN [Concomitant]
     Active Substance: VITAMINS
  2. BOTOX [Suspect]
     Active Substance: ONABOTULINUMTOXINA
     Indication: SKIN WRINKLING
     Dosage: QUANTITY:30 UNITS;?
     Route: 058
  3. PROBIOTIC [Concomitant]
     Active Substance: PROBIOTICS NOS
  4. XANAX [Concomitant]
     Active Substance: ALPRAZOLAM
  5. ZOLOFT [Concomitant]
     Active Substance: SERTRALINE HYDROCHLORIDE
  6. MAGNESIUM [Concomitant]
     Active Substance: MAGNESIUM

REACTIONS (7)
  - Diarrhoea [None]
  - Anxiety [None]
  - Decreased appetite [None]
  - Dizziness [None]
  - Mental disorder [None]
  - Abdominal pain upper [None]
  - Gastrointestinal disorder [None]

NARRATIVE: CASE EVENT DATE: 20170508
